FAERS Safety Report 10395885 (Version 5)
Quarter: 2021Q4

REPORT INFORMATION
  Report Type: Report from Study
  Country: JP (occurrence: JP)
  Receive Date: 20140820
  Receipt Date: 20211101
  Transmission Date: 20220303
  Serious: Yes (Death, Life-Threatening)
  Sender: FDA-Public Use
  Company Number: JP-PFIZER INC-2014230631

PATIENT
  Age: 72 Year
  Sex: Male
  Weight: 43 kg

DRUGS (13)
  1. XALKORI [Suspect]
     Active Substance: CRIZOTINIB
     Indication: Non-small cell lung cancer
     Dosage: 250 MG, 2X/DAY
     Route: 048
     Dates: start: 20130705, end: 20130709
  2. CYMBALTA [Concomitant]
     Active Substance: DULOXETINE HYDROCHLORIDE
     Dosage: 20 MG, 1X/DAY
     Route: 048
     Dates: start: 20130618
  3. RABEPRAZOLE SODIUM [Concomitant]
     Active Substance: RABEPRAZOLE SODIUM
     Dosage: 10 MG, 1X/DAY
     Route: 048
     Dates: start: 20130125
  4. LOXOPROFEN SODIUM [Concomitant]
     Active Substance: LOXOPROFEN SODIUM
     Dosage: 60 MG, 1X/DAY
     Route: 048
     Dates: start: 20130317
  5. BROTIZOLAM [Concomitant]
     Active Substance: BROTIZOLAM
     Dosage: 0.25 MG, 1X/DAY
     Route: 048
     Dates: start: 20130219
  6. PLAVIX [Concomitant]
     Active Substance: CLOPIDOGREL BISULFATE
     Dosage: 75 MG, 1X/DAY
     Route: 048
     Dates: start: 200907
  7. ASPIRIN [Concomitant]
     Active Substance: ASPIRIN
     Dosage: 100 MG, 1X/DAY
     Route: 048
     Dates: start: 200907
  8. SARPOGRELATE [Concomitant]
     Active Substance: SARPOGRELATE
     Dosage: UNK, 1X/DAY
     Route: 048
     Dates: start: 200907
  9. PRAVASTATIN SODIUM [Concomitant]
     Active Substance: PRAVASTATIN SODIUM
     Dosage: 5 MG, 3X/DAY
     Route: 048
     Dates: start: 200910
  10. ENALAPRIL [Concomitant]
     Active Substance: ENALAPRIL
     Dosage: UNK, 1X/DAY
     Dates: start: 20130704
  11. CALCIUM POLYSTYRENE SULFONATE [Concomitant]
     Active Substance: CALCIUM POLYSTYRENE SULFONATE
     Dosage: 25 G, 1X/DAY
     Route: 048
     Dates: start: 20130626
  12. CARBOCYSTEINE [Concomitant]
     Active Substance: CARBOCYSTEINE
     Dosage: 500 MG, 3X/DAY
     Route: 048
     Dates: start: 20130626
  13. FENTANYL [Concomitant]
     Active Substance: FENTANYL
     Dosage: 1 MG, 1X/DAY,EXTERNAL USE

REACTIONS (4)
  - Disease progression [Fatal]
  - Non-small cell lung cancer [Fatal]
  - Acute respiratory failure [Fatal]
  - Hypervolaemia [Recovered/Resolved with Sequelae]

NARRATIVE: CASE EVENT DATE: 20130709
